FAERS Safety Report 6997050-8 (Version None)
Quarter: 2010Q3

REPORT INFORMATION
  Report Type: 
  Country: None (occurrence: None)
  Receive Date: 20100918
  Receipt Date: 20090908
  Transmission Date: 20110219
  Serious: No
  Sender: FDA-Public Use
  Company Number: US-WYE-H10911109

PATIENT
  Sex: Female
  Weight: 74.91 kg

DRUGS (5)
  1. PRISTIQ [Suspect]
     Indication: DEPRESSION
     Route: 048
     Dates: start: 20090907
  2. PAXIL [Concomitant]
     Dosage: UNKNOWN DOSE, NOW TAPERING OFF TAKING EVERY OTHER DAY
     Route: 048
     Dates: start: 19890101
  3. RESTORIL [Concomitant]
  4. ATENOLOL [Concomitant]
  5. VISTARIL [Concomitant]

REACTIONS (3)
  - ANXIETY [None]
  - ENERGY INCREASED [None]
  - INSOMNIA [None]
